FAERS Safety Report 5327410-2 (Version None)
Quarter: 2007Q2

REPORT INFORMATION
  Report Type: 
  Country: None (occurrence: None)
  Receive Date: 20070226
  Receipt Date: 20061108
  Transmission Date: 20071010
  Serious: Yes (Life-Threatening, Hospitalization)
  Sender: FDA-Public Use
  Company Number: WAES 0608USA02576

PATIENT
  Age: 34 Year
  Sex: Male
  Weight: 144.2439 kg

DRUGS (3)
  1. VYTORIN [Suspect]
     Dosage: 10-20 MG/DAILY/PO
     Route: 048
     Dates: start: 20050524, end: 20060806
  2. LOTREL [Concomitant]
  3. SYNTHROID [Concomitant]

REACTIONS (1)
  - RHABDOMYOLYSIS [None]
